FAERS Safety Report 25507105 (Version 5)
Quarter: 2025Q4

REPORT INFORMATION
  Report Type: Spontaneous
  Country: US (occurrence: US)
  Receive Date: 20250702
  Receipt Date: 20251118
  Transmission Date: 20260117
  Serious: No
  Sender: BRISTOL-MYERS SQUIBB COMPANY
  Company Number: US-BRISTOL-MYERS SQUIBB COMPANY-2025-093790

PATIENT
  Age: 79 Year
  Sex: Female
  Weight: 90.26 kg

DRUGS (1)
  1. ORENCIA [Suspect]
     Active Substance: ABATACEPT
     Indication: Rheumatoid arthritis
     Route: 058
     Dates: start: 202504

REACTIONS (9)
  - Infection [Unknown]
  - Pain in extremity [Unknown]
  - Lymphadenopathy [Unknown]
  - Ear disorder [Unknown]
  - General physical health deterioration [Unknown]
  - Neck pain [Unknown]
  - Dyskinesia [Unknown]
  - Ear pain [Unknown]
  - Illness [Unknown]

NARRATIVE: CASE EVENT DATE: 20251101
